FAERS Safety Report 8507817-2 (Version None)
Quarter: 2012Q3

REPORT INFORMATION
  Report Type: 
  Country: None (occurrence: None)
  Receive Date: 20120713
  Receipt Date: 20120710
  Transmission Date: 20120928
  Serious: Yes (Death, Other)
  Sender: FDA-Public Use
  Company Number: PHHY2012CL059321

PATIENT
  Age: 59 Year
  Sex: Male

DRUGS (5)
  1. SIMULECT [Suspect]
     Indication: LIVER TRANSPLANT
     Dosage: 20 MG, UNK
  2. TACROLIMUS [Concomitant]
  3. SIROLIMUS [Concomitant]
  4. STEROIDS [Concomitant]
  5. MYCOPHENOLATE MOFETIL [Concomitant]
     Dosage: 2 G, QD

REACTIONS (3)
  - LIVER TRANSPLANT REJECTION [None]
  - PNEUMONIA [None]
  - ASPIRATION BRONCHIAL [None]
